FAERS Safety Report 12921366 (Version 1)
Quarter: 2016Q4

REPORT INFORMATION
  Report Type: Spontaneous
  Country: CH (occurrence: CH)
  Receive Date: 20161108
  Receipt Date: 20161108
  Transmission Date: 20170207
  Serious: Yes (Other)
  Sender: FDA-Public Use
  Company Number: CH-GLAXOSMITHKLINE-CH2016160423

PATIENT
  Age: 29 Year
  Sex: Female

DRUGS (7)
  1. CISTINA [Concomitant]
     Dosage: 250 MG, UNK
     Route: 048
     Dates: start: 2014
  2. EUTHYROX [Concomitant]
     Active Substance: LEVOTHYROXINE SODIUM
     Indication: HYPOTHYROIDISM
     Dosage: UNK
     Route: 048
  3. PYRIDOXINE [Concomitant]
     Active Substance: PYRIDOXINE
     Dosage: 300 MG, UNK
     Route: 048
     Dates: start: 2014
  4. DUTASTERIDE. [Suspect]
     Active Substance: DUTASTERIDE
     Indication: PRODUCT USED FOR UNKNOWN INDICATION
     Dosage: 0.5 MG 3 X/WEEK
     Route: 048
     Dates: start: 2014, end: 201510
  5. FLUTAMIDE. [Suspect]
     Active Substance: FLUTAMIDE
     Indication: ALOPECIA
     Dosage: 125 MG, QD
     Route: 048
     Dates: start: 2014, end: 201510
  6. FINASTERIDE. [Suspect]
     Active Substance: FINASTERIDE
     Indication: ALOPECIA
     Dosage: 5 MG 3 X/WEEK
     Route: 048
     Dates: start: 2014, end: 201510
  7. CHLORMADINONE ACETATE + ETHINYLOESTRADIOL [Suspect]
     Active Substance: CHLORMADINONE ACETATE\ETHINYL ESTRADIOL
     Indication: CONTRACEPTION
     Dosage: UNK
     Route: 064
     Dates: end: 201510

REACTIONS (3)
  - Off label use [Unknown]
  - Exposure during pregnancy [Unknown]
  - Drug ineffective [Unknown]

NARRATIVE: CASE EVENT DATE: 2014
